FAERS Safety Report 5296405-X (Version None)
Quarter: 2007Q2

REPORT INFORMATION
  Report Type: 
  Country: None (occurrence: None)
  Receive Date: 20070413
  Receipt Date: 20070403
  Transmission Date: 20071010
  Serious: Yes (Hospitalization)
  Sender: FDA-Public Use
  Company Number: FR-ROCHE-491533

PATIENT
  Age: 36 Year
  Sex: Male

DRUGS (4)
  1. VALIUM [Suspect]
     Indication: DRUG USE FOR UNKNOWN INDICATION
     Dosage: DOSING FREQUENCY: ONCE
     Route: 048
     Dates: start: 20070208, end: 20070208
  2. ZYPREXA [Suspect]
     Indication: DRUG USE FOR UNKNOWN INDICATION
     Route: 048
     Dates: start: 20070208, end: 20070208
  3. DEROXAT [Suspect]
     Indication: DRUG USE FOR UNKNOWN INDICATION
     Dosage: DOSING FREQUENCY: ONCE
     Route: 048
     Dates: start: 20070208, end: 20070208
  4. STILNOX [Suspect]
     Indication: DRUG USE FOR UNKNOWN INDICATION
     Dosage: DOSING FREQUENCY: ONCE
     Route: 048
     Dates: start: 20070208, end: 20070208

REACTIONS (2)
  - OVERDOSE [None]
  - SUICIDE ATTEMPT [None]
